FAERS Safety Report 6410715-1 (Version None)
Quarter: 2009Q4

REPORT INFORMATION
  Report Type: 
  Country: None (occurrence: None)
  Receive Date: 20091020
  Receipt Date: 20091020
  Transmission Date: 20100525
  Serious: Yes (Hospitalization)
  Sender: FDA-Public Use
  Company Number: None

PATIENT
  Sex: Male
  Weight: 93.441 kg

DRUGS (2)
  1. TARCEVA [Suspect]
     Indication: RENAL CELL CARCINOMA
     Dosage: 150MG (1 PILL) Q1D ORAL
     Route: 048
     Dates: start: 20090619
  2. SUTENT [Suspect]
     Dosage: 50MG (1 PILL) Q1D ORAL
     Route: 048
     Dates: start: 20090619

REACTIONS (2)
  - PNEUMONIA INFLUENZAL [None]
  - TACHYCARDIA [None]
